FAERS Safety Report 7346021-0 (Version None)
Quarter: 2011Q1

REPORT INFORMATION
  Report Type: 
  Country: None (occurrence: None)
  Receive Date: 20110308
  Receipt Date: 20110308
  Transmission Date: 20110831
  Serious: Yes (Other)
  Sender: FDA-Public Use
  Company Number: None

PATIENT
  Age: 68 Year
  Sex: Male
  Weight: 89 kg

DRUGS (2)
  1. OCTREOTIDE ACETATE [Suspect]
     Indication: DIARRHOEA
     Dosage: 0.1 MG TID SQ
     Route: 058
     Dates: start: 20110220, end: 20110222
  2. OCTREOTIDE ACETATE [Suspect]
     Indication: METASTATIC CARCINOID TUMOUR
     Dosage: 0.1 MG TID SQ
     Route: 058
     Dates: start: 20110220, end: 20110222

REACTIONS (2)
  - MYOCLONUS [None]
  - MUSCLE SPASTICITY [None]
